FAERS Safety Report 5563250-7 (Version None)
Quarter: 2007Q4

REPORT INFORMATION
  Report Type: 
  Country: None (occurrence: None)
  Receive Date: 20071212
  Receipt Date: 20071204
  Transmission Date: 20080405
  Serious: Yes (Other)
  Sender: FDA-Public Use
  Company Number: 2007336789

PATIENT
  Age: 2 Year
  Sex: Female
  Weight: 15.8759 kg

DRUGS (1)
  1. CHILDREN'S PEDIACARE MULTI-SYMPTOM COLD (PSEUDOEPHEDRINE, DEXTROMETHOR [Suspect]
     Indication: ACCIDENTAL OVERDOSE
     Dosage: 1/3 BOTTLE ONCE., ORAL
     Route: 048
     Dates: start: 20071204, end: 20071204

REACTIONS (3)
  - ACCIDENTAL DRUG INTAKE BY CHILD [None]
  - CRYING [None]
  - INCORRECT DOSE ADMINISTERED [None]
